FAERS Safety Report 4539620-2 (Version None)
Quarter: 2004Q4

REPORT INFORMATION
  Report Type: 
  Country: None (occurrence: None)
  Receive Date: 20041228
  Receipt Date: 20041209
  Transmission Date: 20050328
  Serious: Yes (Life-Threatening, Other)
  Sender: FDA-Public Use
  Company Number: PHBS2004IT16585

PATIENT
  Age: 74 Year
  Sex: Male

DRUGS (12)
  1. GLEEVEC [Suspect]
     Indication: ACUTE LYMPHOCYTIC LEUKAEMIA
     Dosage: 600 MG/D
     Route: 048
     Dates: start: 20041104, end: 20041116
  2. GLEEVEC [Suspect]
     Dosage: 300 MG/D
     Route: 048
     Dates: start: 20041129
  3. VINCRISTINE [Concomitant]
     Dosage: 2 MG/D
     Dates: start: 20041016, end: 20041116
  4. ZYLORIC [Concomitant]
     Dosage: 300 MG/D
  5. DELTACORTENE [Concomitant]
     Dosage: 5 MG/D
  6. GLUCOPHAGE [Concomitant]
     Dosage: 500 MG/D
     Route: 048
  7. HUMULIN I [Concomitant]
     Dosage: 28 IU/D
     Route: 058
  8. HUMULIN R [Concomitant]
     Dosage: 25 IU/D
     Route: 058
  9. CARDIOASPIRIN [Concomitant]
     Dosage: 10 MG/D
     Route: 048
  10. TENORMIN [Concomitant]
     Dosage: 25 MG/D
  11. CORDARONE [Concomitant]
     Dosage: 200 MG/D
  12. OMEPRAZOLE [Concomitant]
     Dosage: 20 MG/D

REACTIONS (10)
  - ASTHENIA [None]
  - ATRIOVENTRICULAR BLOCK FIRST DEGREE [None]
  - CARDIAC ENZYMES INCREASED [None]
  - ECG SIGNS OF MYOCARDIAL ISCHAEMIA [None]
  - GENERALISED OEDEMA [None]
  - HYPERVOLAEMIA [None]
  - HYPONATRAEMIA [None]
  - MYOCARDIAL ISCHAEMIA [None]
  - QRS AXIS ABNORMAL [None]
  - VOMITING [None]
